FAERS Safety Report 12837125 (Version 1)
Quarter: 2016Q4

REPORT INFORMATION
  Report Type: Spontaneous
  Country: US (occurrence: US)
  Receive Date: 20161007
  Receipt Date: 20161007
  Transmission Date: 20170207
  Serious: Yes (Other)
  Sender: FDA-Public Use
  Company Number: None

PATIENT
  Age: 50 Year
  Sex: Male

DRUGS (7)
  1. GLIPIZIDE. [Concomitant]
     Active Substance: GLIPIZIDE
  2. INVOKANA [Concomitant]
     Active Substance: CANAGLIFLOZIN
  3. HYDROCODONE [Concomitant]
     Active Substance: HYDROCODONE
  4. CELECOXIB. [Concomitant]
     Active Substance: CELECOXIB
  5. ENBREL [Suspect]
     Active Substance: ETANERCEPT
     Indication: ANKYLOSING SPONDYLITIS
     Dosage: ?          OTHER FREQUENCY:TWICE WEEKLY;?
     Route: 058
     Dates: start: 20091007, end: 20161006
  6. MULTIVITAMIN [Concomitant]
     Active Substance: VITAMINS
  7. SKELAXIN [Concomitant]
     Active Substance: METAXALONE

REACTIONS (1)
  - Lymphoma [None]

NARRATIVE: CASE EVENT DATE: 20161006
